FAERS Safety Report 8852387 (Version 1)
Quarter: 2012Q4

REPORT INFORMATION
  Report Type: 
  Country: US (occurrence: US)
  Receive Date: 20121022
  Receipt Date: 20121022
  Transmission Date: 20130627
  Serious: Yes (Other)
  Sender: FDA-Public Use
  Company Number: US-ASTRAZENECA-2012SE78683

PATIENT
  Age: 70 Year
  Sex: Female
  Weight: 59 kg

DRUGS (2)
  1. TENORMIN [Suspect]
     Indication: SUPRAVENTRICULAR TACHYCARDIA
     Dosage: 50MG EACH MORNING AND 25 MG EACH EVENING
     Route: 048
     Dates: start: 1990, end: 20121010
  2. VERAPAMIL [Concomitant]
     Indication: SUPRAVENTRICULAR TACHYCARDIA
     Route: 048
     Dates: start: 20121011

REACTIONS (4)
  - Supraventricular tachycardia [Unknown]
  - Drug ineffective [Unknown]
  - Heart rate increased [Unknown]
  - Off label use [Recovered/Resolved]
